FAERS Safety Report 11803613 (Version 1)
Quarter: 2015Q4

REPORT INFORMATION
  Report Type: Spontaneous
  Country: FR (occurrence: FR)
  Receive Date: 20151204
  Receipt Date: 20151204
  Transmission Date: 20160305
  Serious: Yes (Other)
  Sender: FDA-Public Use
  Company Number: FR-009507513-1512FRA000956

PATIENT
  Age: 51 Year
  Sex: Female

DRUGS (4)
  1. NORSET [Suspect]
     Active Substance: MIRTAZAPINE
     Dosage: 30 MG, QD
     Route: 048
     Dates: end: 20151109
  2. SERESTA [Suspect]
     Active Substance: OXAZEPAM
     Dosage: 50 MG, QD
     Dates: start: 20151109
  3. NOZINAN [Suspect]
     Active Substance: LEVOMEPROMAZINE
     Dosage: 400 MG, QD
     Route: 048
     Dates: start: 20140710, end: 20151109
  4. SERESTA [Suspect]
     Active Substance: OXAZEPAM
     Dosage: 150 MG, QD
     Route: 048
     Dates: end: 20151109

REACTIONS (1)
  - Hypothermia [Recovered/Resolved]

NARRATIVE: CASE EVENT DATE: 20151109
